FAERS Safety Report 8483051-X (Version None)
Quarter: 2012Q3

REPORT INFORMATION
  Report Type: 
  Country: None (occurrence: None)
  Receive Date: 20120702
  Receipt Date: 20120627
  Transmission Date: 20120928
  Serious: Yes (Life-Threatening, Hospitalization)
  Sender: FDA-Public Use
  Company Number: ES-ABBOTT-12P-144-0950127-00

PATIENT
  Sex: Male
  Weight: 90 kg

DRUGS (2)
  1. HUMIRA [Suspect]
     Indication: PSORIASIS
     Route: 058
     Dates: start: 20110308, end: 20120303
  2. HUMIRA [Suspect]
     Route: 058
     Dates: start: 20120419, end: 20120625

REACTIONS (6)
  - ERECTILE DYSFUNCTION [None]
  - FEMUR FRACTURE [None]
  - ANAEMIA [None]
  - HAEMARTHROSIS [None]
  - HIP FRACTURE [None]
  - LIBIDO DECREASED [None]
